FAERS Safety Report 19247228 (Version 1)
Quarter: 2021Q2

REPORT INFORMATION
  Report Type: Spontaneous
  Country: US (occurrence: US)
  Receive Date: 20210512
  Receipt Date: 20210512
  Transmission Date: 20210717
  Serious: No
  Sender: FDA-Public Use
  Company Number: None

PATIENT
  Sex: Female

DRUGS (19)
  1. ENBREL [Suspect]
     Active Substance: ETANERCEPT
     Indication: RHEUMATOID ARTHRITIS
     Route: 058
     Dates: start: 20210413
  2. CEPHALEXIN. [Concomitant]
     Active Substance: CEPHALEXIN
  3. DOK [Concomitant]
     Active Substance: DOCUSATE SODIUM
  4. DULOXETINE. [Concomitant]
     Active Substance: DULOXETINE
  5. TIZANIDINE. [Concomitant]
     Active Substance: TIZANIDINE
  6. HYDROCHLOROT [Concomitant]
     Active Substance: HYDROCHLOROTHIAZIDE
  7. PREGABALIN. [Concomitant]
     Active Substance: PREGABALIN
  8. ESTRADIOL. [Concomitant]
     Active Substance: ESTRADIOL
  9. GABAPENTIN. [Concomitant]
     Active Substance: GABAPENTIN
  10. METHYLPRED [Concomitant]
     Active Substance: METHYLPREDNISOLONE
  11. PREDNISONE. [Concomitant]
     Active Substance: PREDNISONE
  12. TEMAZEPAM. [Concomitant]
     Active Substance: TEMAZEPAM
  13. TERBINAFINE CRE [Concomitant]
  14. FEROSUL [Concomitant]
     Active Substance: FERROUS SULFATE
  15. METHOCARBAM [Concomitant]
     Active Substance: METHOCARBAMOL
  16. BUPRENORPHIN DIS [Concomitant]
  17. ESZOPICLONE. [Concomitant]
     Active Substance: ESZOPICLONE
  18. HYDROMORPHON [Concomitant]
     Active Substance: HYDROMORPHONE
  19. DICLOFENAC GEL [Concomitant]
     Active Substance: DICLOFENAC

REACTIONS (2)
  - Fall [None]
  - Hip fracture [None]
